FAERS Safety Report 6130613-0 (Version None)
Quarter: 2009Q1

REPORT INFORMATION
  Report Type: 
  Country: None (occurrence: None)
  Receive Date: 20090325
  Receipt Date: 20090317
  Transmission Date: 20090719
  Serious: Yes (Other)
  Sender: FDA-Public Use
  Company Number: PHHY2009BR09994

PATIENT
  Age: 16 Year
  Sex: Female

DRUGS (1)
  1. GLEEVEC [Suspect]
     Dosage: 4 DF PER DAY
     Route: 048
     Dates: start: 20080101

REACTIONS (5)
  - ABORTION SPONTANEOUS [None]
  - INFECTION [None]
  - NEUTROPENIA [None]
  - NO THERAPEUTIC RESPONSE [None]
  - UTERINE DILATION AND CURETTAGE [None]
